FAERS Safety Report 7240507-5 (Version None)
Quarter: 2011Q1

REPORT INFORMATION
  Report Type: 
  Country: None (occurrence: None)
  Receive Date: 20110119
  Receipt Date: 20110119
  Transmission Date: 20110831
  Serious: Yes (Other)
  Sender: FDA-Public Use
  Company Number: None

PATIENT
  Age: 19 Year
  Sex: Male
  Weight: 149.687 kg

DRUGS (1)
  1. PAXIL [Suspect]
     Indication: GENERALISED ANXIETY DISORDER
     Dosage: 20 OR 40 MG DAILY PO
     Route: 048
     Dates: start: 20101001, end: 20101218

REACTIONS (9)
  - IRRITABILITY [None]
  - FEELING ABNORMAL [None]
  - NAUSEA [None]
  - IMPAIRED DRIVING ABILITY [None]
  - DELUSION [None]
  - ANXIETY [None]
  - NERVOUSNESS [None]
  - SUICIDAL IDEATION [None]
  - TREMOR [None]
